FAERS Safety Report 8963077 (Version 1)
Quarter: 2012Q4

REPORT INFORMATION
  Report Type: Spontaneous
  Country: JP (occurrence: None)
  Receive Date: 20121205
  Receipt Date: 20121205
  Transmission Date: 20130627
  Serious: Yes (Hospitalization)
  Sender: FDA-Public Use
  Company Number: 2012-004198

PATIENT
  Age: 79 Year
  Sex: Female

DRUGS (6)
  1. BENET [Suspect]
     Indication: OSTEOPOROSIS
     Dosage: Unknown, Oral
     Route: 048
     Dates: start: 2010, end: 201211
  2. THYRADIN (THYROID) [Concomitant]
  3. ALL OTHER THERAPEUTIC PRODUCTS [Concomitant]
  4. HYPEN /00613801/ETODOLAC) [Concomitant]
  5. REBAMIPIDE (REBAMIPIDE) [Concomitant]
  6. LEDOLPER (BROTIZOLIB) [Concomitant]

REACTIONS (1)
  - Atypical femur fracture [None]
